FAERS Safety Report 24711688 (Version 2)
Quarter: 2024Q4

REPORT INFORMATION
  Report Type: Spontaneous
  Country: US (occurrence: US)
  Receive Date: 20241209
  Receipt Date: 20241209
  Transmission Date: 20250115
  Serious: Yes (Hospitalization)
  Sender: ROCHE
  Company Number: US-ROCHE-10000152194

PATIENT
  Age: 69 Year
  Sex: Male

DRUGS (1)
  1. RITUXAN [Suspect]
     Active Substance: RITUXIMAB
     Indication: Chronic inflammatory demyelinating polyradiculoneuropathy
     Dosage: STRENGHTH: 10MG/ML?FREQUENCY: ON DAY 1 AND DAY 15, CYCLE EVERY 24 WEEKS.
     Route: 042
     Dates: start: 202410

REACTIONS (2)
  - Off label use [Unknown]
  - Dyspnoea [Unknown]
